FAERS Safety Report 8346249 (Version 2)
Quarter: 2012Q4

REPORT INFORMATION
  Report Type: 
  Country: US (occurrence: US)
  Receive Date: 20120120
  Receipt Date: 20121115
  Transmission Date: 20130627
  Serious: Yes (Other)
  Sender: FDA-Public Use
  Company Number: US-JNJFOC-20120106642

PATIENT
  Sex: Female

DRUGS (16)
  1. TOPAMAX [Suspect]
     Indication: BIPOLAR DISORDER
     Route: 048
  2. CLINDAMYCIN [Suspect]
     Indication: BACTERIAL INFECTION
     Route: 067
  3. TERBUTALINE [Suspect]
     Indication: PREMATURE LABOUR
     Route: 048
  4. PROMETRIUM [Suspect]
     Indication: PREGNANCY
     Route: 048
  5. LEXAPRO [Suspect]
     Indication: BIPOLAR DISORDER
     Route: 048
  6. LITHIUM CARBONATE [Suspect]
     Indication: BIPOLAR DISORDER
     Route: 048
  7. BETAMETHASONE [Suspect]
     Indication: PRODUCT USED FOR UNKNOWN INDICATION
     Route: 065
  8. NIFEDIPINE [Suspect]
     Indication: PRODUCT USED FOR UNKNOWN INDICATION
     Route: 065
  9. ZITHROMAX [Suspect]
     Indication: PRODUCT USED FOR UNKNOWN INDICATION
     Route: 065
  10. ETHINYL ESTRADIOL\ETHYNODIOL DIACETATE [Suspect]
     Indication: CONTRACEPTION
     Route: 048
  11. SULFAMETHOXAZOLE\TRIMETHOPRIM [Suspect]
     Indication: URINARY TRACT INFECTION
     Route: 048
  12. NITROFURANTOIN [Suspect]
     Indication: URINARY TRACT INFECTION
     Route: 048
  13. CEPHALEXIN [Suspect]
     Indication: URINARY TRACT INFECTION
     Route: 048
  14. BUSPIRONE [Suspect]
     Indication: SMOKING CESSATION THERAPY
     Route: 048
  15. AMPICILLIN [Suspect]
     Indication: PRODUCT USED FOR UNKNOWN INDICATION
     Route: 065
  16. NATELLE [Concomitant]
     Indication: PREGNANCY
     Route: 048

REACTIONS (2)
  - Abortion spontaneous [Unknown]
  - Exposure during pregnancy [Unknown]
